FAERS Safety Report 20477615 (Version 1)
Quarter: 2022Q1

REPORT INFORMATION
  Report Type: Report from Study
  Country: US (occurrence: US)
  Receive Date: 20220216
  Receipt Date: 20220216
  Transmission Date: 20220423
  Serious: Yes (Other)
  Sender: FDA-Public Use
  Company Number: US-ABBVIE-22K-163-4279576-00

PATIENT
  Sex: Male

DRUGS (1)
  1. VENCLEXTA [Suspect]
     Active Substance: VENETOCLAX
     Indication: Myelodysplastic syndrome
     Dosage: TAKE 1 TAB BY MOUTH ONE DAY 1,2 TAB ON DAY 2 THEN 4 TAB ONCE DAILY WITH FOOD AND WATER
     Route: 048

REACTIONS (1)
  - Transplant [Not Recovered/Not Resolved]
